FAERS Safety Report 8088954 (Version 15)
Quarter: 2013Q3

REPORT INFORMATION
  Report Type: Spontaneous
  Country: CA (occurrence: CA)
  Receive Date: 20110812
  Receipt Date: 20130814
  Transmission Date: 20140515
  Serious: Yes (Other)
  Sender: FDA-Public Use
  Company Number: CA-ROCHE-GNE322732

PATIENT
  Age: 34 Year
  Sex: Female
  Weight: 75 kg

DRUGS (14)
  1. XOLAIR [Suspect]
     Indication: ASTHMA
     Dosage: 300 MG, Q4W, VIAL
     Route: 058
     Dates: start: 20090126
  2. XOLAIR [Suspect]
     Route: 058
     Dates: start: 20090313
  3. XOLAIR [Suspect]
     Route: 058
     Dates: start: 20100830, end: 201205
  4. XOLAIR [Suspect]
     Route: 058
     Dates: start: 20120905
  5. XOLAIR [Suspect]
     Route: 065
     Dates: start: 20121217
  6. SYMBICORT [Concomitant]
     Indication: PRODUCT USED FOR UNKNOWN INDICATION
  7. ALVESCO [Concomitant]
     Indication: PRODUCT USED FOR UNKNOWN INDICATION
  8. SINGULAIR [Concomitant]
     Indication: PRODUCT USED FOR UNKNOWN INDICATION
  9. PREDNISONE [Concomitant]
     Indication: PRODUCT USED FOR UNKNOWN INDICATION
     Route: 065
     Dates: end: 20111215
  10. ATROVENT [Concomitant]
     Indication: PRODUCT USED FOR UNKNOWN INDICATION
  11. COVERSYL [Concomitant]
     Route: 065
  12. TIAZAC [Concomitant]
     Route: 065
  13. HYDROCHLOROTHIAZIDE [Concomitant]
     Route: 065
  14. NITROGLYCERINE [Concomitant]
     Dosage: AS NEEDED
     Route: 060

REACTIONS (18)
  - Blood pressure increased [Recovered/Resolved]
  - Chest pain [Unknown]
  - Cardiac disorder [Unknown]
  - Palpitations [Unknown]
  - Chest discomfort [Unknown]
  - Heart rate increased [Recovered/Resolved]
  - Dizziness [Unknown]
  - Hypersensitivity [Unknown]
  - Asthma [Unknown]
  - Gastrointestinal disorder [Unknown]
  - Dyspnoea [Unknown]
  - Swelling face [Recovered/Resolved]
  - Headache [Unknown]
  - Myocardial infarction [Unknown]
  - Pyrexia [Unknown]
  - Swollen tongue [Unknown]
  - Nausea [Unknown]
  - Dyspnoea [Unknown]
